FAERS Safety Report 10040482 (Version 2)
Quarter: 2014Q2

REPORT INFORMATION
  Report Type: Spontaneous
  Country: US (occurrence: US)
  Receive Date: 20140327
  Receipt Date: 20140429
  Transmission Date: 20141212
  Serious: No
  Sender: FDA-Public Use
  Company Number: US-009507513-1403USA004984

PATIENT
  Sex: Female

DRUGS (3)
  1. DULERA [Suspect]
     Dosage: 2 PUFFS TWICE DAILY
     Route: 055
     Dates: start: 201401
  2. DULERA [Suspect]
     Dosage: 2 PUFFS TWICE DAILY
     Route: 055
     Dates: start: 2014
  3. DULERA [Suspect]
     Dosage: 2 PUFFS TWICE DAILY
     Route: 055
     Dates: start: 2014

REACTIONS (4)
  - Drug ineffective [Unknown]
  - Drug dose omission [Unknown]
  - Product quality issue [Unknown]
  - No adverse event [Unknown]
